FAERS Safety Report 12499441 (Version 2)
Quarter: 2017Q1

REPORT INFORMATION
  Report Type: Spontaneous
  Country: BR (occurrence: BR)
  Receive Date: 20160627
  Receipt Date: 20170206
  Transmission Date: 20170428
  Serious: Yes (Other)
  Sender: FDA-Public Use
  Company Number: BR-ABBVIE-16P-020-1660962-00

PATIENT
  Age: 30 Year
  Sex: Female

DRUGS (4)
  1. DEPAKENE [Suspect]
     Active Substance: VALPROIC ACID
     Indication: HALLUCINATION
     Route: 065
  2. DIAZEPAM. [Concomitant]
     Active Substance: DIAZEPAM
     Indication: SLEEP DISORDER THERAPY
     Dosage: DAILY DOSE: 10 MILLIGRAM; AT NIGHT.
     Route: 048
  3. RISPERIDONE. [Concomitant]
     Active Substance: RISPERIDONE
     Indication: HALLUCINATION
     Dosage: DAILY DOSE: 6 MILLIGRAM; MORNING / AFTERNOON / NIGHT
     Route: 048
  4. DEPAKENE [Suspect]
     Active Substance: VALPROIC ACID
     Indication: HALLUCINATION
     Dosage: MORNING / AFTERNOON / NIGHT
     Route: 065
     Dates: start: 20160606

REACTIONS (8)
  - Impaired reasoning [Unknown]
  - Tremor [Unknown]
  - Amnesia [Unknown]
  - Product use issue [Unknown]
  - Depression [Unknown]
  - Off label use [Unknown]
  - Drug administration error [Unknown]
  - Psychomotor hyperactivity [Unknown]

NARRATIVE: CASE EVENT DATE: 201606
